FAERS Safety Report 8429650 (Version 3)
Quarter: 2013Q1

REPORT INFORMATION
  Report Type: Spontaneous
  Country: US (occurrence: US)
  Receive Date: 20120227
  Receipt Date: 20130307
  Transmission Date: 20140127
  Serious: Yes (Hospitalization, Disabling, Other)
  Sender: FDA-Public Use
  Company Number: US-ASTRAZENECA-2010SE37103

PATIENT
  Age: 18852 Day
  Sex: Female
  Weight: 122.5 kg

DRUGS (5)
  1. SEROQUEL [Suspect]
     Indication: SCHIZOPHRENIA
     Route: 048
     Dates: start: 2005
  2. SEROQUEL [Suspect]
     Indication: BIPOLAR I DISORDER
     Route: 048
     Dates: start: 2005
  3. SEROQUEL [Suspect]
     Indication: SCHIZOPHRENIA
     Route: 048
  4. SEROQUEL [Suspect]
     Indication: BIPOLAR I DISORDER
     Route: 048
  5. GEODON [Concomitant]

REACTIONS (5)
  - Foot fracture [Not Recovered/Not Resolved]
  - Drug intolerance [Unknown]
  - Disability [Unknown]
  - Malaise [Unknown]
  - Drug ineffective [Unknown]
